FAERS Safety Report 9310562 (Version 1)
Quarter: 2013Q2

REPORT INFORMATION
  Report Type: Spontaneous
  Country: US (occurrence: US)
  Receive Date: 20130527
  Receipt Date: 20130527
  Transmission Date: 20140414
  Serious: No
  Sender: FDA-Public Use
  Company Number: US-009507513-1305USA013900

PATIENT
  Sex: Female
  Weight: 49.89 kg

DRUGS (4)
  1. ZOCOR [Suspect]
     Indication: BLOOD CHOLESTEROL INCREASED
  2. CENTRUM (MINERALS (UNSPECIFIED) (+) VITAMINS (UNSPECIFIED)) [Concomitant]
     Indication: VITAMIN SUPPLEMENTATION
  3. CALTRATE [Concomitant]
     Indication: MINERAL SUPPLEMENTATION
  4. TYLENOL [Concomitant]
     Indication: HEADACHE

REACTIONS (1)
  - Drug ineffective [Unknown]
